FAERS Safety Report 6129072-3 (Version None)
Quarter: 2009Q1

REPORT INFORMATION
  Report Type: 
  Country: None (occurrence: None)
  Receive Date: 20090324
  Receipt Date: 20081210
  Transmission Date: 20090719
  Serious: Yes (Hospitalization)
  Sender: FDA-Public Use
  Company Number: ES-JNJFOC-20080405011

PATIENT
  Age: 6 Year
  Sex: Female

DRUGS (1)
  1. RISPERDAL [Suspect]
     Indication: ABNORMAL BEHAVIOUR
     Dates: start: 20071207, end: 20080202

REACTIONS (6)
  - BRAIN MASS [None]
  - CSF PRESSURE INCREASED [None]
  - HEADACHE [None]
  - MASS [None]
  - PAPILLOEDEMA [None]
  - VOMITING [None]
